FAERS Safety Report 7372592-4 (Version None)
Quarter: 2011Q1

REPORT INFORMATION
  Report Type: 
  Country: None (occurrence: None)
  Receive Date: 20110315
  Receipt Date: 20110228
  Transmission Date: 20110831
  Serious: Yes (Hospitalization)
  Sender: FDA-Public Use
  Company Number: JP-2011-10207

PATIENT
  Age: 85 Year
  Sex: Female

DRUGS (3)
  1. ASPIRIN [Concomitant]
  2. PLETAL [Suspect]
     Indication: CEREBRAL ARTERIOSCLEROSIS
     Dosage: ORAL
     Route: 048
  3. LANSOPRAZOLE [Suspect]

REACTIONS (4)
  - ASCITES [None]
  - DIVERTICULUM INTESTINAL [None]
  - COLITIS COLLAGENOUS [None]
  - LARGE INTESTINAL ULCER [None]
